FAERS Safety Report 7598488-0 (Version None)
Quarter: 2011Q3

REPORT INFORMATION
  Report Type: 
  Country: None (occurrence: None)
  Receive Date: 20110708
  Receipt Date: 20110623
  Transmission Date: 20111222
  Serious: Yes (Death, Other)
  Sender: FDA-Public Use
  Company Number: TH-MERCK-1106USA03225

PATIENT
  Age: 73 Year
  Sex: Female

DRUGS (5)
  1. COLCHICINE [Concomitant]
     Indication: GOUT
     Route: 065
     Dates: start: 20091001, end: 20091101
  2. ALLOPURINOL [Suspect]
     Indication: GOUT
     Route: 065
     Dates: start: 20091001, end: 20091101
  3. PRIMAXIN [Suspect]
     Indication: LOWER RESPIRATORY TRACT INFECTION
     Route: 041
     Dates: start: 20091101, end: 20091101
  4. COLISTIN [Concomitant]
     Indication: LOWER RESPIRATORY TRACT INFECTION
     Route: 065
     Dates: start: 20091101, end: 20091101
  5. CIPROFLOXACIN [Suspect]
     Indication: LOWER RESPIRATORY TRACT INFECTION
     Route: 041
     Dates: start: 20091001, end: 20091101

REACTIONS (2)
  - TOXIC EPIDERMAL NECROLYSIS [None]
  - SEPSIS [None]
